FAERS Safety Report 4488302-4 (Version None)
Quarter: 2004Q4

REPORT INFORMATION
  Report Type: 
  Country: None (occurrence: None)
  Receive Date: 20041026
  Receipt Date: 20041013
  Transmission Date: 20050328
  Serious: Yes (Other)
  Sender: FDA-Public Use
  Company Number: 2004077846

PATIENT
  Age: 43 Year
  Sex: Male
  Weight: 92.0802 kg

DRUGS (6)
  1. NEURONTIN [Suspect]
     Indication: CONVULSION
     Dosage: 1200 MG (600 MG, 2 IN 1 D), ORAL
     Route: 048
     Dates: start: 20020101
  2. VALDECOXIB [Suspect]
     Indication: NECK PAIN
     Dates: start: 20041008
  3. CYCLOBENZAPRINE HCL [Suspect]
     Indication: ILL-DEFINED DISORDER
     Dates: end: 20040901
  4. LEVETIRACETAM [Concomitant]
  5. ALPRAZOLAM [Concomitant]
  6. PROPOXYPHENE HCL [Concomitant]

REACTIONS (4)
  - BLOOD PRESSURE INCREASED [None]
  - BLOOD SODIUM DECREASED [None]
  - CONVULSION [None]
  - DRUG INEFFECTIVE [None]
